FAERS Safety Report 6266701-8 (Version None)
Quarter: 2009Q3

REPORT INFORMATION
  Report Type: 
  Country: None (occurrence: None)
  Receive Date: 20090714
  Receipt Date: 20070717
  Transmission Date: 20100115
  Serious: Yes (Hospitalization)
  Sender: FDA-Public Use
  Company Number: US-ASTRAZENECA-2006UW25190

PATIENT
  Age: 17164 Day
  Sex: Female
  Weight: 103.9 kg

DRUGS (26)
  1. SEROQUEL [Suspect]
     Indication: SLEEP DISORDER
     Route: 048
     Dates: start: 19970101
  2. SEROQUEL [Suspect]
     Indication: SCHIZOAFFECTIVE DISORDER
     Route: 048
     Dates: start: 19970101
  3. SEROQUEL [Suspect]
     Dosage: 200-1500 MG
     Route: 048
     Dates: start: 20020717
  4. SEROQUEL [Suspect]
     Dosage: 200-1500 MG
     Route: 048
     Dates: start: 20020717
  5. CLOZARIL [Concomitant]
  6. HALDOL [Concomitant]
  7. RISPERDAL [Concomitant]
     Dosage: 2 MG TWO TIMES A DAY, 3 MG TWO TIMES A DAY, 3 MG AT NIGHT
     Route: 048
  8. THORAZINE [Concomitant]
  9. ZYPREXA [Concomitant]
     Dosage: 30 MG AT NIGHT, 10 AT NIGHT 20 MG AT NIGHT
     Route: 048
  10. KLONOPIN [Concomitant]
     Indication: ANXIETY
     Dosage: 0.5 MG FOUR TIMES A DAY, 0.5 MG TWO TIMES A DAY, 0.5 MG THREE TIMES A DAY
     Route: 048
  11. NEURONTIN [Concomitant]
     Dosage: 800 MG THREE TIMES A DAY, 800 MG FOUR TIMES A DAY, 1600 MG FOUR TIMES A DAY,400 MG THREE TIMES A DAY
     Route: 048
  12. ELAVIL [Concomitant]
     Dosage: 25 MG AT NIGHT, 75 MG AT NIGHT
     Route: 048
  13. PHENERGAN [Concomitant]
  14. PREVACID [Concomitant]
     Route: 048
  15. LORTAB [Concomitant]
     Indication: PAIN
     Dosage: 7.5/500 MG EVERY 6 HOURS, 10/50 MG EVERY 6 HOURS
     Route: 048
  16. AVANDIA [Concomitant]
     Indication: DIABETES MELLITUS
     Route: 048
  17. ALBUTEROL [Concomitant]
     Indication: WHEEZING
     Dosage: 2-4 PUFFS EVERY 4-6 HOURS
  18. AMARYL [Concomitant]
     Dosage: 2 MG DAILY, 4 MG DAILY
     Route: 048
  19. ACTOS [Concomitant]
     Dosage: 15 MG DAILY, 45 MG DAILY
     Route: 048
  20. CLONIDINE HCL [Concomitant]
     Route: 048
  21. METFORMIN HYDROCHLORIDE [Concomitant]
  22. PREDNISONE [Concomitant]
  23. NASACORT AQ [Concomitant]
     Dosage: 2 SPRAYS DAILY
  24. LORATADINE [Concomitant]
     Dosage: STRENGTH-10 MG
  25. FLOVENT HFA [Concomitant]
     Dosage: STRENGTH-10 MCG
  26. AVANDAMET [Concomitant]
     Dosage: 2/500 MG TWO TABLETS TWO TIMES A DAY
     Route: 048

REACTIONS (4)
  - DIABETES MELLITUS [None]
  - DIABETES MELLITUS INADEQUATE CONTROL [None]
  - DIABETIC NEUROPATHY [None]
  - NEUROPATHY PERIPHERAL [None]
